FAERS Safety Report 9487018 (Version 1)
Quarter: 2013Q3

REPORT INFORMATION
  Report Type: Spontaneous
  Country: US (occurrence: US)
  Receive Date: 20130829
  Receipt Date: 20130829
  Transmission Date: 20140515
  Serious: Yes (Hospitalization)
  Sender: FDA-Public Use
  Company Number: US-ACTAVIS-2013-14796

PATIENT
  Age: 37 Year
  Sex: Female
  Weight: 65 kg

DRUGS (1)
  1. TRIPLE ANTIBIOTIC (AMALLC) [Suspect]
     Indication: SCRATCH
     Dosage: APPLIED, SINGLE
     Route: 061
     Dates: start: 20130701, end: 20130701

REACTIONS (5)
  - Blood blister [Recovering/Resolving]
  - Erythema [Recovering/Resolving]
  - Local swelling [Recovering/Resolving]
  - Pain in extremity [Recovering/Resolving]
  - Hypersensitivity [Recovering/Resolving]
